FAERS Safety Report 10152230 (Version 1)
Quarter: 2014Q2

REPORT INFORMATION
  Report Type: Spontaneous
  Country: US (occurrence: None)
  Receive Date: 20140502
  Receipt Date: 20140502
  Transmission Date: 20141212
  Serious: Yes (Hospitalization)
  Sender: FDA-Public Use
  Company Number: None

PATIENT
  Age: 48 Year
  Sex: Female
  Weight: 110.22 kg

DRUGS (1)
  1. AMLODIPINE BESYLATE [Suspect]
     Indication: BLOOD PRESSURE
     Route: 048
     Dates: start: 20140301, end: 20140423

REACTIONS (12)
  - Nausea [None]
  - Vomiting [None]
  - Dyspnoea [None]
  - Pharyngeal oedema [None]
  - Swelling [None]
  - Dizziness [None]
  - Heart rate increased [None]
  - Headache [None]
  - Fatigue [None]
  - Flushing [None]
  - Paraesthesia [None]
  - Feeling hot [None]
